FAERS Safety Report 19782485 (Version 1)
Quarter: 2021Q3

REPORT INFORMATION
  Report Type: Spontaneous
  Country: US (occurrence: US)
  Receive Date: 20210902
  Receipt Date: 20210902
  Transmission Date: 20211014
  Serious: No
  Sender: FDA-Public Use
  Company Number: US-SA-2021SA287106

PATIENT
  Age: 32 Year
  Sex: Male

DRUGS (8)
  1. DUPIXENT [Suspect]
     Active Substance: DUPILUMAB
     Indication: DERMATITIS ATOPIC
     Dosage: 300 MG
     Route: 058
     Dates: start: 20210730
  2. CLOBETASOL [Concomitant]
     Active Substance: CLOBETASOL
  3. ALBUTEROL [SALBUTAMOL] [Concomitant]
     Active Substance: ALBUTEROL
  4. TRIAMCINOLONE [Concomitant]
     Active Substance: TRIAMCINOLONE
  5. PREDNISONE. [Concomitant]
     Active Substance: PREDNISONE
  6. METHYLPRED [Concomitant]
     Active Substance: METHYLPREDNISOLONE
  7. TACROLIMUS. [Concomitant]
     Active Substance: TACROLIMUS
  8. CEPHALEXINE [Concomitant]
     Active Substance: CEPHALEXIN

REACTIONS (1)
  - Dermatitis atopic [Not Recovered/Not Resolved]
